FAERS Safety Report 23154181 (Version 1)
Quarter: 2023Q4

REPORT INFORMATION
  Report Type: Spontaneous
  Country: US (occurrence: US)
  Receive Date: 20231107
  Receipt Date: 20231107
  Transmission Date: 20240110
  Serious: Yes (Hospitalization, Other)
  Sender: FDA-Public Use
  Company Number: US-RIGEL PHARMACEUTICALS, INC.-2023FOS001162

PATIENT
  Age: 61 Year
  Sex: Female

DRUGS (2)
  1. TAVALISSE [Suspect]
     Active Substance: FOSTAMATINIB
     Indication: Haemolytic anaemia
     Dosage: 150 MG, BID
     Route: 048
     Dates: start: 20220604
  2. PREDNISONE [Concomitant]
     Active Substance: PREDNISONE
     Indication: Product used for unknown indication
     Dosage: UNK

REACTIONS (6)
  - Hospitalisation [Unknown]
  - Pancreatitis [Unknown]
  - Pancytopenia [Unknown]
  - Platelet count decreased [Unknown]
  - Platelet count [Unknown]
  - Off label use [Unknown]

NARRATIVE: CASE EVENT DATE: 20220604
